FAERS Safety Report 8268706-4 (Version None)
Quarter: 2012Q2

REPORT INFORMATION
  Report Type: 
  Country: None (occurrence: None)
  Receive Date: 20120409
  Receipt Date: 20120403
  Transmission Date: 20120825
  Serious: Yes (Death, Hospitalization)
  Sender: FDA-Public Use
  Company Number: BE-CELGENEUS-013-C5013-10061424

PATIENT
  Sex: Male
  Weight: 71 kg

DRUGS (14)
  1. LORAZEPAM [Concomitant]
     Route: 065
  2. WHOLE BLOOD [Concomitant]
     Route: 065
  3. CORDARONE [Concomitant]
     Route: 065
  4. LASIX [Concomitant]
     Route: 065
  5. OMEPRAZOLE [Concomitant]
     Route: 065
  6. MEDROL [Suspect]
     Indication: MULTIPLE MYELOMA
     Dosage: 230400 MILLIGRAM
     Route: 048
  7. CALCIUM CARBONATE [Concomitant]
     Route: 065
  8. LYSOMUCIL [Concomitant]
     Route: 065
  9. LAXOBERON [Concomitant]
     Route: 065
  10. LANITOP [Concomitant]
     Route: 065
  11. VELCADE [Suspect]
     Indication: MULTIPLE MYELOMA
     Route: 050
     Dates: start: 20100427, end: 20100610
  12. REVLIMID [Suspect]
     Indication: MULTIPLE MYELOMA
     Dosage: 5 MILLIGRAM
     Route: 048
     Dates: start: 20100427, end: 20100610
  13. ASPIRIN [Concomitant]
     Dosage: {=100MG
     Route: 065
  14. BEFACT [Concomitant]
     Route: 065

REACTIONS (2)
  - FAECALOMA [None]
  - PULMONARY OEDEMA [None]
